FAERS Safety Report 7978707-9 (Version None)
Quarter: 2011Q4

REPORT INFORMATION
  Report Type: 
  Country: None (occurrence: None)
  Receive Date: 20111214
  Receipt Date: 20111208
  Transmission Date: 20120403
  Serious: Yes (Death, Life-Threatening, Other)
  Sender: FDA-Public Use
  Company Number: JP-ASTELLAS-2011JP009120

PATIENT
  Sex: Female

DRUGS (18)
  1. NABUMETONE [Concomitant]
     Indication: RHEUMATOID ARTHRITIS
     Route: 065
  2. AMLODIPINE [Concomitant]
     Route: 065
  3. FOLIC ACID [Concomitant]
     Route: 065
  4. SENNA [Concomitant]
     Route: 065
  5. ORENCIA [Suspect]
     Indication: RHEUMATOID ARTHRITIS
     Dosage: 500 MG, UNKNOWN/D
     Route: 041
     Dates: start: 20110517
  6. SULFASALAZINE [Concomitant]
     Route: 065
  7. ETIZOLAM [Concomitant]
     Route: 065
  8. CALCIUM PANTOTHENATE [Concomitant]
     Route: 065
  9. METHOTREXATE [Suspect]
     Indication: RHEUMATOID ARTHRITIS
     Dosage: 10.5 MG, WEEKLY
     Route: 065
     Dates: start: 20110121, end: 20110228
  10. METHOTREXATE [Suspect]
     Dosage: 10 MG, WEEKLY
     Dates: start: 20110301, end: 20110905
  11. VALSARTAN [Concomitant]
     Route: 065
  12. ATORVASTATIN CALCIUM [Concomitant]
     Route: 065
  13. PROGRAF [Suspect]
     Indication: RHEUMATOID ARTHRITIS
     Dosage: UNK
     Route: 065
     Dates: end: 20110101
  14. ISOSORBIDE MONONITRATE [Concomitant]
     Route: 065
  15. ASPIRIN [Concomitant]
     Route: 065
  16. MECOBALAMIN [Concomitant]
     Route: 065
  17. RISEDRONATE SODIUM [Concomitant]
     Route: 065
  18. ASCORBIC ACID [Concomitant]
     Route: 065

REACTIONS (7)
  - HEPATORENAL SYNDROME [None]
  - HYPONATRAEMIA [None]
  - INTERSTITIAL LUNG DISEASE [None]
  - PNEUMOCYSTIS JIROVECI PNEUMONIA [None]
  - DISSEMINATED INTRAVASCULAR COAGULATION [None]
  - FLUID RETENTION [None]
  - HYPOALBUMINAEMIA [None]
